FAERS Safety Report 8116784-5 (Version None)
Quarter: 2012Q1

REPORT INFORMATION
  Report Type: 
  Country: None (occurrence: None)
  Receive Date: 20120206
  Receipt Date: 20120130
  Transmission Date: 20120608
  Serious: Yes (Hospitalization, Other)
  Sender: FDA-Public Use
  Company Number: PHHY2012BE007647

PATIENT
  Sex: Male

DRUGS (5)
  1. AVELOX [Concomitant]
     Dosage: 400 MG, QD
     Dates: start: 20111219
  2. ONBREZ [Suspect]
     Indication: CHRONIC OBSTRUCTIVE PULMONARY DISEASE
     Dosage: UNK
     Dates: start: 20111219
  3. XANTHIUM [Concomitant]
     Indication: CHRONIC OBSTRUCTIVE PULMONARY DISEASE
     Dosage: 300 MG, BID
     Route: 048
  4. OMEPRAZOLE [Concomitant]
     Indication: DYSPLASIA
     Dosage: 20 MG, QD
     Route: 048
     Dates: start: 20030901
  5. ACETYLCYSTEINE [Concomitant]
     Indication: CHRONIC OBSTRUCTIVE PULMONARY DISEASE
     Route: 048

REACTIONS (1)
  - CONVULSION [None]
